FAERS Safety Report 4303799-8 (Version None)
Quarter: 2004Q1

REPORT INFORMATION
  Report Type: 
  Country: None (occurrence: None)
  Receive Date: 20040224
  Receipt Date: 20040224
  Transmission Date: 20041129
  Serious: Yes (Hospitalization)
  Sender: FDA-Public Use
  Company Number: None

PATIENT
  Age: 42 Year
  Sex: Male
  Weight: 95.2554 kg

DRUGS (1)
  1. ZYPREXA [Suspect]
     Dosage: 5 MG 1 A DAY
     Dates: start: 20040129, end: 20040212

REACTIONS (7)
  - CRYSTAL URINE PRESENT [None]
  - DEHYDRATION [None]
  - FEELING ABNORMAL [None]
  - MARKEDLY REDUCED DIETARY INTAKE [None]
  - NAUSEA [None]
  - TREMOR [None]
  - VOMITING [None]
